FAERS Safety Report 15533476 (Version 3)
Quarter: 2020Q2

REPORT INFORMATION
  Report Type: Spontaneous
  Country: ES (occurrence: ES)
  Receive Date: 20181019
  Receipt Date: 20200407
  Transmission Date: 20200713
  Serious: Yes (Death, Life-Threatening, Hospitalization, Other)
  Sender: FDA-Public Use
  Company Number: ES-PFIZER INC-2018424330

PATIENT
  Age: 73 Year
  Sex: Female

DRUGS (4)
  1. CAPTOPRIL. [Suspect]
     Active Substance: CAPTOPRIL
     Indication: HYPERTENSION
     Dosage: 25 MG, 1X/DAY
     Route: 060
     Dates: start: 20180712, end: 20180821
  2. RIFAMPICIN [Concomitant]
     Active Substance: RIFAMPIN
     Indication: POSTOPERATIVE WOUND INFECTION
     Dosage: 600 MG, 1X/DAY
     Route: 048
     Dates: start: 20180723, end: 20180821
  3. DAPTOMYCIN. [Suspect]
     Active Substance: DAPTOMYCIN
     Indication: POSTOPERATIVE WOUND INFECTION
     Dosage: 500 MG, 1X/DAY
     Route: 042
     Dates: start: 20180719, end: 20180817
  4. SULFAMETOXAZOL + TRIMETOPRIMA [Suspect]
     Active Substance: SULFAMETHOXAZOLE\TRIMETHOPRIM
     Indication: URINARY TRACT INFECTION
     Dosage: UNK
     Route: 048
     Dates: start: 20180801, end: 20180821

REACTIONS (2)
  - Acute interstitial pneumonitis [Fatal]
  - Eosinophilia [Fatal]

NARRATIVE: CASE EVENT DATE: 20180813
